FAERS Safety Report 5521155-1 (Version None)
Quarter: 2007Q4

REPORT INFORMATION
  Report Type: 
  Country: None (occurrence: None)
  Receive Date: 20071119
  Receipt Date: 20071108
  Transmission Date: 20080405
  Serious: Yes (Hospitalization)
  Sender: FDA-Public Use
  Company Number: CH-ASTRAZENECA-2007PK02350

PATIENT
  Sex: Male

DRUGS (3)
  1. SEROQUEL [Suspect]
     Dates: end: 20060609
  2. TRITTICO [Suspect]
     Route: 048
     Dates: end: 20060609
  3. XANAX [Suspect]
     Route: 048
     Dates: end: 20060609

REACTIONS (1)
  - HYPOGLYCAEMIA NEONATAL [None]
